FAERS Safety Report 25248534 (Version 1)
Quarter: 2025Q2

REPORT INFORMATION
  Report Type: Spontaneous
  Country: US (occurrence: US)
  Receive Date: 20250429
  Receipt Date: 20250429
  Transmission Date: 20250717
  Serious: Yes (Other)
  Sender: CATALYST PHARMA
  Company Number: US-CATALYST PHARMACEUTICALS-US-CATA-25-00580

PATIENT
  Age: 8 Year
  Sex: Male
  Weight: 49.991 kg

DRUGS (16)
  1. AGAMREE [Suspect]
     Active Substance: VAMOROLONE
     Indication: Duchenne muscular dystrophy
     Dosage: 6 ML DAILY
     Route: 048
     Dates: start: 20240530, end: 20250324
  2. AGAMREE [Suspect]
     Active Substance: VAMOROLONE
     Dosage: 7.5 ML DAILY
     Route: 048
     Dates: start: 2025
  3. GENE THERAPY [Concomitant]
     Indication: Product used for unknown indication
     Route: 065
     Dates: start: 202412
  4. CETIRIZINE [Concomitant]
     Active Substance: CETIRIZINE HYDROCHLORIDE
     Indication: Hypersensitivity
     Route: 048
  5. D-VI-SOL [Concomitant]
     Indication: Prophylaxis
     Dosage: 1.2 ML DAILY
     Route: 048
  6. ALBUTEROL SULFATE [Concomitant]
     Active Substance: ALBUTEROL SULFATE
     Indication: Cough
     Route: 055
  7. ALBUTEROL SULFATE [Concomitant]
     Active Substance: ALBUTEROL SULFATE
     Indication: Wheezing
  8. CULTURELLE PROBIOTICS KIDS [Concomitant]
     Indication: Gastrointestinal disorder prophylaxis
     Route: 048
  9. METROCREAM [Concomitant]
     Active Substance: METRONIDAZOLE
     Indication: Eczema
     Dosage: DAILY
     Route: 061
  10. TACROLIMUS [Concomitant]
     Active Substance: TACROLIMUS
     Indication: Eczema
     Dosage: DAILY
     Route: 061
  11. CHILDRENS TYLENOL [Concomitant]
     Active Substance: ACETAMINOPHEN
     Indication: Pain
     Route: 048
  12. MAGNESIUM CITRATE [Concomitant]
     Active Substance: MAGNESIUM CITRATE
     Indication: Feeling of relaxation
     Dosage: 125 MG DAILY
     Route: 048
  13. MAGNESIUM CITRATE [Concomitant]
     Active Substance: MAGNESIUM CITRATE
     Indication: Sleep disorder
  14. MAGNESIUM CITRATE [Concomitant]
     Active Substance: MAGNESIUM CITRATE
     Indication: Affective disorder
  15. FAMOTIDINE [Concomitant]
     Active Substance: FAMOTIDINE
     Indication: Gastrointestinal disorder prophylaxis
     Dosage: 2.5 ML DAILY
     Route: 048
  16. SMARTY PANTS KIDS COMPLETE [Concomitant]
     Indication: Hypovitaminosis
     Dosage: FOUR GUMMIES DAILY
     Route: 048

REACTIONS (1)
  - Adrenal insufficiency [Recovered/Resolved]

NARRATIVE: CASE EVENT DATE: 20250324
